FAERS Safety Report 9682405 (Version 1)
Quarter: 2013Q4

REPORT INFORMATION
  Report Type: Spontaneous
  Country: US (occurrence: US)
  Receive Date: 20131112
  Receipt Date: 20131112
  Transmission Date: 20140711
  Serious: No
  Sender: FDA-Public Use
  Company Number: US-BIOGENIDEC-2013BI106167

PATIENT
  Age: 66 Year
  Sex: Female

DRUGS (3)
  1. AVONEX [Suspect]
     Indication: MULTIPLE SCLEROSIS
     Route: 030
     Dates: start: 19981201, end: 2003
  2. AVONEX [Suspect]
     Indication: MULTIPLE SCLEROSIS
     Route: 030
     Dates: start: 2003, end: 2012
  3. AVONEX [Suspect]
     Indication: MULTIPLE SCLEROSIS
     Route: 030
     Dates: start: 2012

REACTIONS (3)
  - Injection site bruising [Recovered/Resolved]
  - Underdose [Recovered/Resolved]
  - Injection site pain [Recovered/Resolved]
